FAERS Safety Report 25759108 (Version 1)
Quarter: 2025Q3

REPORT INFORMATION
  Report Type: Report from Study
  Country: US (occurrence: US)
  Receive Date: 20250904
  Receipt Date: 20250904
  Transmission Date: 20251020
  Serious: Yes (Other)
  Sender: TAKEDA
  Company Number: US-TAKEDA-2025TUS043766

PATIENT
  Age: 39 Year
  Sex: Female

DRUGS (16)
  1. FRUQUINTINIB [Suspect]
     Active Substance: FRUQUINTINIB
     Indication: Product used for unknown indication
     Dosage: 1 MILLIGRAM, QD
     Dates: start: 20250502
  2. LEVOTHYROXINE [Concomitant]
     Active Substance: LEVOTHYROXINE
  3. SENNA [Concomitant]
     Active Substance: SENNOSIDES
  4. SERTRALINE [Concomitant]
     Active Substance: SERTRALINE HYDROCHLORIDE
  5. OMEPRAZOLE [Concomitant]
     Active Substance: OMEPRAZOLE
  6. ONDANSETRON [Concomitant]
     Active Substance: ONDANSETRON
  7. HYDROXYZINE [Concomitant]
     Active Substance: HYDROXYZINE HYDROCHLORIDE
  8. ALPRAZOLAM [Concomitant]
     Active Substance: ALPRAZOLAM
  9. PROCHLORPERAZINE [Concomitant]
     Active Substance: PROCHLORPERAZINE
  10. OXYCODONE [Concomitant]
     Active Substance: OXYCODONE
  11. VALACYCLOVIR [Concomitant]
     Active Substance: VALACYCLOVIR HYDROCHLORIDE
  12. RIZATRIPTAN [Concomitant]
     Active Substance: RIZATRIPTAN
  13. HYOSCYAMINE [Concomitant]
     Active Substance: HYOSCYAMINE
  14. LOPERAMIDE [Concomitant]
     Active Substance: LOPERAMIDE
  15. LIDOCAINE [Concomitant]
     Active Substance: LIDOCAINE
  16. LIDOCAINE [Concomitant]
     Active Substance: LIDOCAINE

REACTIONS (2)
  - Neoplasm malignant [Unknown]
  - Sinusitis [Recovered/Resolved]

NARRATIVE: CASE EVENT DATE: 20250507
